FAERS Safety Report 25204117 (Version 1)
Quarter: 2025Q2

REPORT INFORMATION
  Report Type: Spontaneous
  Country: US (occurrence: None)
  Receive Date: 20250416
  Receipt Date: 20250416
  Transmission Date: 20250716
  Serious: Yes (Other)
  Sender: FDA-CTU
  Company Number: None

PATIENT
  Age: 69 Year
  Sex: Female

DRUGS (3)
  1. ANASTROZOLE [Suspect]
     Active Substance: ANASTROZOLE
     Indication: Breast cancer recurrent
     Dosage: FREQUENCY : DAILY;?
     Route: 048
     Dates: start: 20250315, end: 20250413
  2. HUMALOG INJ [Concomitant]
  3. TRESIBA FLEX INJ [Concomitant]

REACTIONS (3)
  - Arthralgia [None]
  - Pain in extremity [None]
  - Musculoskeletal stiffness [None]

NARRATIVE: CASE EVENT DATE: 20250315
